FAERS Safety Report 11124351 (Version 1)
Quarter: 2015Q2

REPORT INFORMATION
  Report Type: Spontaneous
  Country: US (occurrence: None)
  Receive Date: 20150519
  Receipt Date: 20150519
  Transmission Date: 20150821
  Serious: No
  Sender: FDA-Public Use
  Company Number: None

PATIENT
  Age: 60 Year
  Sex: Male

DRUGS (1)
  1. HARVONI [Suspect]
     Active Substance: LEDIPASVIR\SOFOSBUVIR
     Indication: HEPATITIS C
     Route: 048
     Dates: start: 20150402, end: 20150515

REACTIONS (6)
  - Affect lability [None]
  - Diarrhoea [None]
  - Depressed mood [None]
  - Condition aggravated [None]
  - Dizziness [None]
  - Back disorder [None]

NARRATIVE: CASE EVENT DATE: 20150518
